FAERS Safety Report 4731397-0 (Version None)
Quarter: 2005Q3

REPORT INFORMATION
  Report Type: 
  Country: None (occurrence: None)
  Receive Date: 20050802
  Receipt Date: 20050728
  Transmission Date: 20060218
  Serious: Yes (Death)
  Sender: FDA-Public Use
  Company Number: 200512211JP

PATIENT
  Sex: Male

DRUGS (4)
  1. TAXOTERE [Suspect]
     Indication: GASTRIC CANCER
     Route: 041
     Dates: start: 20050301, end: 20050701
  2. TAXOTERE [Suspect]
     Indication: METASTASES TO LIVER
     Route: 041
     Dates: start: 20050301, end: 20050701
  3. ANTINEOPLASTIC AND IMMUNOSUPPRESSIVE AGENTS [Concomitant]
     Indication: GASTRIC CANCER
     Dates: start: 20050301, end: 20050701
  4. ANTINEOPLASTIC AND IMMUNOSUPPRESSIVE AGENTS [Concomitant]
     Indication: METASTASES TO LIVER
     Dates: start: 20050301, end: 20050701

REACTIONS (1)
  - INTERSTITIAL LUNG DISEASE [None]
